FAERS Safety Report 5288539-0 (Version None)
Quarter: 2007Q2

REPORT INFORMATION
  Report Type: 
  Country: None (occurrence: None)
  Receive Date: 20070405
  Receipt Date: 20070301
  Transmission Date: 20071010
  Serious: No
  Sender: FDA-Public Use
  Company Number: US-JNJFOC-20070300969

PATIENT
  Age: 17 Year
  Sex: Female

DRUGS (6)
  1. INVEGA [Suspect]
     Indication: MIGRAINE
     Route: 048
  2. INVEGA [Suspect]
     Indication: MAJOR DEPRESSION
     Route: 048
  3. TOPAMAX [Suspect]
     Indication: MIGRAINE PROPHYLAXIS
     Route: 048
  4. EFFEXOR XR [Concomitant]
     Indication: DEPRESSION
     Route: 048
  5. REQUIP [Concomitant]
     Route: 048
  6. RELPAX [Concomitant]
     Indication: MIGRAINE
     Route: 048

REACTIONS (1)
  - GALACTORRHOEA [None]
